FAERS Safety Report 9382004 (Version 2)
Quarter: 2013Q3

REPORT INFORMATION
  Report Type: Spontaneous
  Country: US (occurrence: US)
  Receive Date: 20130703
  Receipt Date: 20130724
  Transmission Date: 20140515
  Serious: Yes (Hospitalization)
  Sender: FDA-Public Use
  Company Number: US-GILEAD-2013-0078331

PATIENT
  Sex: Female

DRUGS (3)
  1. LETAIRIS [Suspect]
     Indication: PULMONARY HYPERTENSION
     Dosage: 10 MG, QD
     Route: 048
     Dates: start: 20130206
  2. LETAIRIS [Suspect]
     Indication: INTERSTITIAL LUNG DISEASE
  3. ADCIRCA [Concomitant]

REACTIONS (5)
  - Multi-organ failure [Unknown]
  - Convulsion [Unknown]
  - Pyrexia [Unknown]
  - Hypoxia [Unknown]
  - White blood cell count increased [Unknown]
